FAERS Safety Report 24852103 (Version 1)
Quarter: 2025Q1

REPORT INFORMATION
  Report Type: Spontaneous
  Country: US (occurrence: US)
  Receive Date: 20250116
  Receipt Date: 20250116
  Transmission Date: 20250408
  Serious: No
  Sender: SK LIFE SCIENCE
  Company Number: US-SK LIFE SCIENCE, INC-SKPVG-2024-002247

PATIENT

DRUGS (1)
  1. XCOPRI [Suspect]
     Active Substance: CENOBAMATE
     Indication: Product used for unknown indication
     Dosage: 12.5 MILLIGRAM, QD
     Route: 048
     Dates: start: 20240914, end: 20240921

REACTIONS (6)
  - Mania [Unknown]
  - Insomnia [Unknown]
  - Expired product administered [Recovered/Resolved]
  - Vomiting [Unknown]
  - Dizziness [Unknown]
  - Nervousness [Unknown]

NARRATIVE: CASE EVENT DATE: 20240921
